FAERS Safety Report 21041974 (Version 1)
Quarter: 2022Q3

REPORT INFORMATION
  Report Type: Spontaneous
  Country: US (occurrence: US)
  Receive Date: 20220705
  Receipt Date: 20220705
  Transmission Date: 20221027
  Serious: No
  Sender: FDA-Public Use
  Company Number: US-TEVA-2022-US-2045966

PATIENT
  Age: 25 Year
  Sex: Female

DRUGS (2)
  1. CLONAZEPAM [Suspect]
     Active Substance: CLONAZEPAM
     Indication: Anxiety
     Dates: start: 20220606
  2. CLONAZEPAM [Suspect]
     Active Substance: CLONAZEPAM
     Dates: start: 2018, end: 2018

REACTIONS (7)
  - Product use in unapproved indication [Unknown]
  - Anxiety [Not Recovered/Not Resolved]
  - Depressed mood [Not Recovered/Not Resolved]
  - Drug effective for unapproved indication [Unknown]
  - Therapeutic product effect variable [Not Recovered/Not Resolved]
  - Nervousness [Not Recovered/Not Resolved]
  - Product substitution error [Unknown]

NARRATIVE: CASE EVENT DATE: 20220601
